FAERS Safety Report 14280426 (Version 3)
Quarter: 2018Q3

REPORT INFORMATION
  Report Type: Report from Study
  Country: BR (occurrence: BR)
  Receive Date: 20171213
  Receipt Date: 20180911
  Transmission Date: 20181010
  Serious: Yes (Other)
  Sender: FDA-Public Use
  Company Number: PHHY2017BR179549

PATIENT
  Sex: Female
  Weight: 75 kg

DRUGS (4)
  1. COSENTYX [Suspect]
     Active Substance: SECUKINUMAB
     Indication: PSORIASIS
     Dosage: 300 MG, UNK
     Route: 058
     Dates: start: 20171020
  2. COSENTYX [Suspect]
     Active Substance: SECUKINUMAB
     Dosage: 1 DF (PEN), QW
     Route: 058
     Dates: start: 20180828
  3. COSENTYX [Suspect]
     Active Substance: SECUKINUMAB
     Dosage: 300 MG, QMO
     Route: 058
  4. COSENTYX [Suspect]
     Active Substance: SECUKINUMAB
     Dosage: UNK
     Route: 065
     Dates: start: 20171117

REACTIONS (4)
  - Appendicitis [Unknown]
  - Psoriasis [Not Recovered/Not Resolved]
  - Memory impairment [Unknown]
  - Hypersensitivity [Not Recovered/Not Resolved]
